FAERS Safety Report 8148593-5 (Version None)
Quarter: 2012Q1

REPORT INFORMATION
  Report Type: 
  Country: None (occurrence: None)
  Receive Date: 20120218
  Receipt Date: 20110620
  Transmission Date: 20120608
  Serious: No
  Sender: FDA-Public Use
  Company Number: US-ALLERGAN-1108324US

PATIENT
  Age: 22 Year
  Sex: Male

DRUGS (6)
  1. ASPIRIN [Concomitant]
  2. BOTULINUM TOXIN TYPE A [Suspect]
     Indication: MUSCLE SPASTICITY
     Dosage: 100 UNITS, SINGLE
     Dates: start: 20110620, end: 20110620
  3. MELATONIN [Concomitant]
  4. PROVIGIL [Concomitant]
  5. DANTROLENE SODIUM [Concomitant]
  6. AMBIEN [Concomitant]

REACTIONS (2)
  - INJECTION SITE ERYTHEMA [None]
  - RASH [None]
